FAERS Safety Report 7098752-8 (Version None)
Quarter: 2010Q4

REPORT INFORMATION
  Report Type: 
  Country: None (occurrence: None)
  Receive Date: 20101110
  Receipt Date: 20101110
  Transmission Date: 20110411
  Serious: Yes (Hospitalization)
  Sender: FDA-Public Use
  Company Number: None

PATIENT
  Age: 68 Year
  Sex: Male
  Weight: 83.91 kg

DRUGS (5)
  1. MEXILETINE HYDROCHLORIDE [Suspect]
     Indication: SMOKING CESSATION THERAPY
     Dosage: 150 MG BID PO; 150 MG EVERY PO
     Route: 048
     Dates: start: 20090511, end: 20100503
  2. MEXILETINE HYDROCHLORIDE [Suspect]
     Indication: VENTRICULAR TACHYCARDIA
     Dosage: 150 MG BID PO; 150 MG EVERY PO
     Route: 048
     Dates: start: 20090511, end: 20100503
  3. MEXILETINE HYDROCHLORIDE [Suspect]
     Indication: SMOKING CESSATION THERAPY
     Dosage: 150 MG BID PO; 150 MG EVERY PO
     Route: 048
     Dates: start: 20090904
  4. MEXILETINE HYDROCHLORIDE [Suspect]
     Indication: VENTRICULAR TACHYCARDIA
     Dosage: 150 MG BID PO; 150 MG EVERY PO
     Route: 048
     Dates: start: 20090904
  5. BUPROPION HCL [Suspect]

REACTIONS (5)
  - AGITATION [None]
  - CONFUSIONAL STATE [None]
  - FALL [None]
  - INCORRECT DOSE ADMINISTERED [None]
  - MENTAL STATUS CHANGES [None]
